FAERS Safety Report 5809727-8 (Version None)
Quarter: 2008Q3

REPORT INFORMATION
  Report Type: 
  Country: None (occurrence: None)
  Receive Date: 20080714
  Receipt Date: 20080714
  Transmission Date: 20090109
  Serious: Yes (Life-Threatening, Hospitalization, Other)
  Sender: FDA-Public Use
  Company Number: None

PATIENT
  Age: 18 Year
  Sex: Male
  Weight: 68.0396 kg

DRUGS (1)
  1. AMBIEN [Suspect]
     Indication: INSOMNIA
     Dosage: 20MG ONCE AT BEDTIME PO
     Route: 048
     Dates: start: 20071220, end: 20080127

REACTIONS (7)
  - AMNESIA [None]
  - GUN SHOT WOUND [None]
  - HAEMORRHAGE [None]
  - ILL-DEFINED DISORDER [None]
  - INJURY [None]
  - PAIN IN EXTREMITY [None]
  - SHOCK [None]
